FAERS Safety Report 4840433-2 (Version None)
Quarter: 2005Q4

REPORT INFORMATION
  Report Type: 
  Country: None (occurrence: None)
  Receive Date: 20051130
  Receipt Date: 20050826
  Transmission Date: 20060501
  Serious: Yes (Death, Hospitalization)
  Sender: FDA-Public Use
  Company Number: ES-ABBOTT-05P-144-0309582-00

PATIENT
  Sex: Male
  Weight: 82 kg

DRUGS (7)
  1. HUMIRA [Suspect]
     Indication: RHEUMATOID ARTHRITIS
     Route: 058
     Dates: start: 20040928, end: 20050825
  2. COMMERCIAL HUMIRA [Concomitant]
     Indication: RHEUMATOID ARTHRITIS
     Route: 058
     Dates: start: 20040302
  3. ZDMEME [Concomitant]
     Indication: RHEUMATOID ARTHRITIS
  4. RAMIPRIL [Concomitant]
     Indication: MYOCARDIAL INFARCTION
     Dates: start: 20000303
  5. ACETYLSALICYLIC ACID [Concomitant]
     Indication: ISCHAEMIC CARDIOMYOPATHY
     Dates: start: 20040902
  6. FUROSEMIDE [Concomitant]
     Indication: ISCHAEMIC CARDIOMYOPATHY
     Dates: start: 20040525
  7. CARVEDILOL [Concomitant]
     Indication: ISCHAEMIC CARDIOMYOPATHY
     Dates: start: 20040907

REACTIONS (1)
  - ADENOCARCINOMA PANCREAS [None]
